FAERS Safety Report 5588338-6 (Version None)
Quarter: 2008Q1

REPORT INFORMATION
  Report Type: 
  Country: None (occurrence: None)
  Receive Date: 20080111
  Receipt Date: 20071016
  Transmission Date: 20080703
  Serious: No
  Sender: FDA-Public Use
  Company Number: A0671293A

PATIENT
  Age: 49 Year
  Sex: Female
  Weight: 73.6 kg

DRUGS (6)
  1. TYKERB [Suspect]
     Indication: BREAST CANCER
     Dosage: 4MG PER DAY
     Route: 048
     Dates: start: 20070801
  2. TAXOL [Concomitant]
     Dates: start: 20070801
  3. CARBOPLATIN [Concomitant]
     Dates: start: 20070801
  4. NEXIUM [Concomitant]
     Dates: start: 20070801
  5. CHANTIX [Concomitant]
     Dates: start: 20070801
  6. VITAMIN [Concomitant]
     Dates: start: 20070801

REACTIONS (2)
  - DIARRHOEA [None]
  - NAUSEA [None]
